FAERS Safety Report 9480692 (Version 1)
Quarter: 2013Q3

REPORT INFORMATION
  Report Type: Spontaneous
  Country: US (occurrence: US)
  Receive Date: 20130828
  Receipt Date: 20130828
  Transmission Date: 20140515
  Serious: Yes (Other)
  Sender: FDA-Public Use
  Company Number: US-AMGEN-KDL109711

PATIENT
  Age: 40 Year
  Sex: Female

DRUGS (3)
  1. ENBREL [Suspect]
     Indication: RHEUMATOID ARTHRITIS
     Dosage: 50 MG, QWK
     Route: 058
     Dates: start: 20021220
  2. METHOTREXATE [Concomitant]
     Dosage: .8 ML, QWK
     Dates: start: 1988
  3. HYDROXYCHLOROQUINE SULFATE [Concomitant]
     Dosage: UNK UNK, QD
     Dates: start: 1988

REACTIONS (6)
  - Systemic lupus erythematosus [Unknown]
  - Condition aggravated [Unknown]
  - Oropharyngeal pain [Unknown]
  - Sinus congestion [Unknown]
  - Pyrexia [Unknown]
  - Fatigue [Unknown]
